FAERS Safety Report 15239347 (Version 1)
Quarter: 2018Q3

REPORT INFORMATION
  Report Type: Spontaneous
  Country: US (occurrence: US)
  Receive Date: 20180803
  Receipt Date: 20180803
  Transmission Date: 20181010
  Serious: Yes (Other)
  Sender: FDA-Public Use
  Company Number: US-ALEXION PHARMACEUTICALS INC-A201809959

PATIENT
  Age: 35 Year
  Sex: Male

DRUGS (2)
  1. SOLIRIS [Suspect]
     Active Substance: ECULIZUMAB
     Indication: APLASTIC ANAEMIA
     Dosage: 600 MG, EVERY 7 +/?2 DAYS FOR 4 DOSES
     Route: 042
  2. SOLIRIS [Suspect]
     Active Substance: ECULIZUMAB
     Indication: PAROXYSMAL NOCTURNAL HAEMOGLOBINURIA
     Dosage: 900 MG, EVERY  14 +/? 2 DAYSS
     Route: 042

REACTIONS (2)
  - Bone marrow failure [Unknown]
  - Haemolysis [Unknown]
